FAERS Safety Report 19145067 (Version 1)
Quarter: 2021Q2

REPORT INFORMATION
  Report Type: Spontaneous
  Country: CA (occurrence: CA)
  Receive Date: 20210416
  Receipt Date: 20210416
  Transmission Date: 20210717
  Serious: Yes (Other)
  Sender: FDA-Public Use
  Company Number: CA-ORION CORPORATION ORION PHARMA-21_00014055

PATIENT
  Age: 67 Year
  Sex: Female

DRUGS (4)
  1. ERELZI [Concomitant]
     Active Substance: ETANERCEPT-SZZS
     Route: 065
  2. PREDNISONE. [Concomitant]
     Active Substance: PREDNISONE
     Route: 065
  3. HYDROXYCHLOROQUINE [Concomitant]
     Active Substance: HYDROXYCHLOROQUINE
     Indication: RHEUMATOID ARTHRITIS
     Route: 065
  4. METHOTREXATE (TRADE NAME UNKNOWN) [Suspect]
     Active Substance: METHOTREXATE
     Indication: RHEUMATOID ARTHRITIS
     Route: 065

REACTIONS (9)
  - Musculoskeletal stiffness [Unknown]
  - Polymyalgia rheumatica [Unknown]
  - Chillblains [Unknown]
  - Antinuclear antibody [Unknown]
  - Pain in extremity [Unknown]
  - Osteoarthritis [Unknown]
  - Antinuclear antibody positive [Unknown]
  - Sjogren^s syndrome [Unknown]
  - Rheumatoid arthritis [Unknown]
